FAERS Safety Report 13069473 (Version 5)
Quarter: 2017Q2

REPORT INFORMATION
  Report Type: Report from Study
  Country: IN (occurrence: IN)
  Receive Date: 20161228
  Receipt Date: 20170523
  Transmission Date: 20170830
  Serious: Yes (Other)
  Sender: FDA-Public Use
  Company Number: IN-PFIZER INC-2016586362

PATIENT
  Age: 32 Year
  Sex: Male
  Weight: 58 kg

DRUGS (6)
  1. BLINDED BEVACIZUMAB [Suspect]
     Active Substance: BEVACIZUMAB
     Indication: NON-SMALL CELL LUNG CANCER
     Dosage: 15 MG/ML, EVERY 21 DAYS
     Route: 042
     Dates: start: 20161020, end: 20161111
  2. CARBOPLATIN. [Suspect]
     Active Substance: CARBOPLATIN
     Indication: NON-SMALL CELL LUNG CANCER
     Dosage: 6 AUC, EVERY 21 DAYS
     Route: 042
     Dates: start: 20161020, end: 20161111
  3. BLINDED PF-06439535 [Suspect]
     Active Substance: INVESTIGATIONAL PRODUCT
     Indication: NON-SMALL CELL LUNG CANCER
     Dosage: 15 MG/ML, EVERY 21 DAYS
     Route: 042
     Dates: start: 20161020, end: 20161111
  4. BLINDED PF-06439535 [Suspect]
     Active Substance: INVESTIGATIONAL PRODUCT
     Indication: NON-SMALL CELL LUNG CANCER
     Dosage: 15 MG/ML, EVERY 21 DAYS
     Route: 042
     Dates: start: 20161020, end: 20161111
  5. BLINDED BEVACIZUMAB [Suspect]
     Active Substance: BEVACIZUMAB
     Indication: NON-SMALL CELL LUNG CANCER
     Dosage: 15 MG/ML, EVERY 21 DAYS
     Route: 042
     Dates: start: 20161020, end: 20161111
  6. PACLITAXEL. [Suspect]
     Active Substance: PACLITAXEL
     Indication: NON-SMALL CELL LUNG CANCER
     Dosage: 200 MG/M2, EVERY 21 DAYS
     Dates: start: 20161020, end: 20161111

REACTIONS (1)
  - Jugular vein thrombosis [Recovered/Resolved]

NARRATIVE: CASE EVENT DATE: 20161215
